FAERS Safety Report 7249064-0 (Version None)
Quarter: 2011Q1

REPORT INFORMATION
  Report Type: 
  Country: None (occurrence: None)
  Receive Date: 20110128
  Receipt Date: 20100901
  Transmission Date: 20110831
  Serious: Yes (Other)
  Sender: FDA-Public Use
  Company Number: US-BAYER-201018516NA

PATIENT
  Sex: Female
  Weight: 78.409 kg

DRUGS (2)
  1. YASMIN [Suspect]
     Indication: CONTRACEPTION
     Route: 048
     Dates: start: 20090901, end: 20091101
  2. NEXIUM [Concomitant]
     Dosage: 40 MG (DAILY DOSE), QD,
     Dates: start: 19990101, end: 20090101

REACTIONS (3)
  - BILIARY COLIC [None]
  - CHOLECYSTITIS CHRONIC [None]
  - CHOLELITHIASIS [None]
